FAERS Safety Report 4630084-7 (Version None)
Quarter: 2005Q2

REPORT INFORMATION
  Report Type: 
  Country: None (occurrence: None)
  Receive Date: 20050406
  Receipt Date: 20050328
  Transmission Date: 20051028
  Serious: Yes (Hospitalization, Disabling)
  Sender: FDA-Public Use
  Company Number: HQWYE029506OCT03

PATIENT
  Age: 63 Year
  Sex: Male

DRUGS (6)
  1. CORDARONE [Suspect]
     Indication: CARDIAC DISORDER
     Dosage: 400 MG 1X PER 1 DAY; 50 MG 1X PER 1 DAY
     Dates: start: 20020501, end: 20020501
  2. CORDARONE [Suspect]
     Indication: CARDIAC DISORDER
     Dosage: 400 MG 1X PER 1 DAY; 50 MG 1X PER 1 DAY
     Dates: start: 20020501, end: 20030801
  3. FERROUS SULFATE TAB [Concomitant]
  4. ASPIRIN [Concomitant]
  5. OMEPRAZOLE [Concomitant]
  6. BISOPROLOL FUMARATE [Concomitant]

REACTIONS (13)
  - CONDITION AGGRAVATED [None]
  - COUGH [None]
  - FALL [None]
  - GLIOBLASTOMA [None]
  - INTERVERTEBRAL DISC DEGENERATION [None]
  - JOINT STIFFNESS [None]
  - LOSS OF PROPRIOCEPTION [None]
  - MOUTH ULCERATION [None]
  - NEUROPATHY PERIPHERAL [None]
  - NIGHTMARE [None]
  - PARAESTHESIA [None]
  - PHOTOSENSITIVITY REACTION [None]
  - TENSION [None]
